FAERS Safety Report 6792679-4 (Version None)
Quarter: 2010Q2

REPORT INFORMATION
  Report Type: 
  Country: None (occurrence: None)
  Receive Date: 20100624
  Receipt Date: 20080922
  Transmission Date: 20101027
  Serious: No
  Sender: FDA-Public Use
  Company Number: US-PFIZER INC-2008074604

PATIENT
  Sex: Female

DRUGS (2)
  1. XALATAN [Suspect]
     Indication: GLAUCOMA
     Dates: start: 20030101
  2. TIMOLOL MALEATE [Concomitant]

REACTIONS (2)
  - BLOOD PRESSURE ABNORMAL [None]
  - EYE IRRITATION [None]
